FAERS Safety Report 9705438 (Version 1)
Quarter: 2013Q4

REPORT INFORMATION
  Report Type: Report from Study
  Country: US (occurrence: US)
  Receive Date: 20131122
  Receipt Date: 20131122
  Transmission Date: 20140711
  Serious: Yes (Hospitalization)
  Sender: FDA-Public Use
  Company Number: US-MPIJNJ-2013MPI000978

PATIENT
  Sex: Male
  Weight: 13.6 kg

DRUGS (5)
  1. VELCADE [Suspect]
     Indication: ACUTE MYELOID LEUKAEMIA
     Dosage: 1.3 MG/M2, ON DAYS 1, 4, AND 8
     Route: 040
     Dates: start: 20131024, end: 20131024
  2. CYTARABINE [Suspect]
     Indication: ACUTE MYELOID LEUKAEMIA
     Dosage: 3.3 MG/KG, BID ON DAYS 1-10
     Route: 042
     Dates: start: 20131024, end: 20131102
  3. CYTARABINE [Suspect]
     Dosage: ON DAY 1
     Route: 037
     Dates: start: 20131024, end: 20131024
  4. DAUNORUBICIN HYDROCHLORIDE [Suspect]
     Indication: ACUTE MYELOID LEUKAEMIA
     Dosage: 1.7 MG/KG, ON DAYS 1, 3 AND 5
     Route: 042
     Dates: start: 20131024, end: 20131028
  5. ETOPOSIDE [Suspect]
     Indication: ACUTE MYELOID LEUKAEMIA
     Dosage: 3.3 MG/KG, ON DAYS 1-5
     Route: 042
     Dates: start: 20131024, end: 20131028

REACTIONS (1)
  - Colitis [Recovered/Resolved]
